FAERS Safety Report 18736727 (Version 1)
Quarter: 2021Q1

REPORT INFORMATION
  Report Type: Spontaneous
  Country: FR (occurrence: FR)
  Receive Date: 20210113
  Receipt Date: 20210113
  Transmission Date: 20210419
  Serious: Yes (Other)
  Sender: FDA-Public Use
  Company Number: FR-MYLANLABS-2021M1001434

PATIENT
  Age: 20 Year
  Sex: Female

DRUGS (1)
  1. PARACETAMOL [Suspect]
     Active Substance: ACETAMINOPHEN
     Indication: PRODUCT USED FOR UNKNOWN INDICATION
     Dosage: 8 GRAM, TOTAL
     Route: 048
     Dates: start: 20200908, end: 20200908

REACTIONS (3)
  - Poisoning deliberate [Unknown]
  - Malaise [Recovered/Resolved]
  - Analgesic drug level above therapeutic [Unknown]

NARRATIVE: CASE EVENT DATE: 20200908
